FAERS Safety Report 11618606 (Version 1)
Quarter: 2015Q4

REPORT INFORMATION
  Report Type: Spontaneous
  Country: GB (occurrence: GB)
  Receive Date: 20151012
  Receipt Date: 20151012
  Transmission Date: 20160304
  Serious: Yes (Disabling)
  Sender: FDA-Public Use
  Company Number: GB-ROCHE-1644741

PATIENT
  Age: 58 Year

DRUGS (2)
  1. METHYLPREDNISOLONE SODIUM SUCCINATE. [Concomitant]
     Active Substance: METHYLPREDNISOLONE SODIUM SUCCINATE
     Route: 040
  2. MABTHERA [Suspect]
     Active Substance: RITUXIMAB
     Indication: RHEUMATOID ARTHRITIS
     Dosage: 500MG/50ML
     Route: 040

REACTIONS (1)
  - Blindness unilateral [Unknown]

NARRATIVE: CASE EVENT DATE: 20150218
